FAERS Safety Report 4467159-1 (Version None)
Quarter: 2004Q4

REPORT INFORMATION
  Report Type: 
  Country: None (occurrence: None)
  Receive Date: 20041004
  Receipt Date: 20041004
  Transmission Date: 20050328
  Serious: No
  Sender: FDA-Public Use
  Company Number: None

PATIENT
  Age: 63 Year
  Sex: Male
  Weight: 68.9467 kg

DRUGS (1)
  1. OXYCODONE  80 S [Suspect]
     Indication: PAIN
     Dosage: PO BID
     Route: 048

REACTIONS (5)
  - CONSTIPATION [None]
  - HEADACHE [None]
  - HYPERHIDROSIS [None]
  - PHARMACEUTICAL PRODUCT COMPLAINT [None]
  - TREMOR [None]
